FAERS Safety Report 20178554 (Version 2)
Quarter: 2021Q4

REPORT INFORMATION
  Report Type: Spontaneous
  Country: US (occurrence: US)
  Receive Date: 20211214
  Receipt Date: 20211222
  Transmission Date: 20220303
  Serious: Yes (Other)
  Sender: FDA-Public Use
  Company Number: US-BEH-2021139384

PATIENT
  Age: 72 Year
  Sex: Female

DRUGS (1)
  1. HIZENTRA [Suspect]
     Active Substance: HUMAN IMMUNOGLOBULIN G
     Indication: Immunosuppression
     Dosage: 9 GRAM, QW
     Route: 058
     Dates: start: 2011

REACTIONS (3)
  - Seizure [Recovered/Resolved]
  - Malignant polyp [Unknown]
  - Fatigue [Unknown]

NARRATIVE: CASE EVENT DATE: 20210401
